FAERS Safety Report 11121392 (Version 3)
Quarter: 2015Q4

REPORT INFORMATION
  Report Type: Report from Study
  Country: JP (occurrence: JP)
  Receive Date: 20150519
  Receipt Date: 20151228
  Transmission Date: 20160304
  Serious: Yes (Hospitalization)
  Sender: FDA-Public Use
  Company Number: JP-EISAI MEDICAL RESEARCH-E2020-13932-SOL-JP

PATIENT
  Age: 88 Year
  Sex: Female

DRUGS (11)
  1. TSUMURA YOKUKANSAN EXTRACT GRANULES [Concomitant]
  2. DEPAKENE [Concomitant]
     Active Substance: VALPROIC ACID
  3. TETRAMIDE [Concomitant]
     Active Substance: MIANSERIN
  4. RHYTHMY [Concomitant]
     Active Substance: RILMAZAFONE HYDROCHLORIDE
  5. RISPERDAL [Concomitant]
     Active Substance: RISPERIDONE
  6. REFLEX [Concomitant]
     Active Substance: MIRTAZAPINE
  7. ARICEPT [Suspect]
     Active Substance: DONEPEZIL HYDROCHLORIDE
     Indication: DEMENTIA ALZHEIMER^S TYPE
     Route: 048
     Dates: start: 20131217
  8. MEMARY [Concomitant]
     Active Substance: MEMANTINE HYDROCHLORIDE
     Route: 048
     Dates: start: 20140219, end: 201404
  9. MYSLEE [Concomitant]
     Active Substance: ZOLPIDEM TARTRATE
  10. MEMARY [Concomitant]
     Active Substance: MEMANTINE HYDROCHLORIDE
     Indication: DEMENTIA ALZHEIMER^S TYPE
     Route: 048
     Dates: start: 20131217, end: 20140218
  11. MAGLAX [Concomitant]
     Active Substance: MAGNESIUM OXIDE

REACTIONS (1)
  - Fall [Unknown]

NARRATIVE: CASE EVENT DATE: 20140408
